FAERS Safety Report 22812175 (Version 5)
Quarter: 2024Q4

REPORT INFORMATION
  Report Type: Report from Study
  Country: US (occurrence: US)
  Receive Date: 20230811
  Receipt Date: 20241220
  Transmission Date: 20250114
  Serious: Yes (Hospitalization, Other)
  Sender: ABBVIE
  Company Number: US-ABBVIE-5361510

PATIENT
  Age: 60 Year
  Sex: Male

DRUGS (2)
  1. SKYRIZI [Suspect]
     Active Substance: RISANKIZUMAB-RZAA
     Indication: Crohn^s disease
     Dosage: FORM STRENGTH: 360 MILLIGRAM/MILLILITERS??DISCONTINUED IN 2022
     Route: 058
     Dates: start: 20221104
  2. SKYRIZI [Suspect]
     Active Substance: RISANKIZUMAB-RZAA
     Route: 058
     Dates: start: 20221230

REACTIONS (14)
  - Thalamic stroke [Recovered/Resolved]
  - Nervousness [Unknown]
  - Muscle twitching [Unknown]
  - Confusional state [Unknown]
  - Hemiparesis [Unknown]
  - Hypoaesthesia [Unknown]
  - Cardiac disorder [Not Recovered/Not Resolved]
  - Muscle spasms [Unknown]
  - Pain in jaw [Not Recovered/Not Resolved]
  - Neck pain [Not Recovered/Not Resolved]
  - Embolic stroke [Recovering/Resolving]
  - Mobility decreased [Unknown]
  - Cerebrovascular accident [Not Recovered/Not Resolved]
  - Bruxism [Recovered/Resolved]

NARRATIVE: CASE EVENT DATE: 20230801
